FAERS Safety Report 10396317 (Version 1)
Quarter: 2014Q3

REPORT INFORMATION
  Report Type: Spontaneous
  Country: US (occurrence: US)
  Receive Date: 20140820
  Receipt Date: 20140820
  Transmission Date: 20150326
  Serious: No
  Sender: FDA-Public Use
  Company Number: US-TEVA-497879USA

PATIENT
  Sex: Female

DRUGS (1)
  1. COPAXONE [Suspect]
     Active Substance: GLATIRAMER ACETATE
     Indication: MULTIPLE SCLEROSIS
     Dosage: 20 MILLIGRAM DAILY;

REACTIONS (5)
  - Hyperhidrosis [Unknown]
  - Hypoaesthesia [Recovered/Resolved]
  - Injection site haemorrhage [Unknown]
  - Abdominal discomfort [Unknown]
  - Dizziness [Unknown]
